FAERS Safety Report 11853629 (Version 2)
Quarter: 2016Q4

REPORT INFORMATION
  Report Type: Spontaneous
  Country: US (occurrence: US)
  Receive Date: 20151219
  Receipt Date: 20161222
  Transmission Date: 20170206
  Serious: No
  Sender: FDA-Public Use
  Company Number: US-BAUSCH-BL-2015-019484

PATIENT
  Sex: Female

DRUGS (1)
  1. XENAZINE [Suspect]
     Active Substance: TETRABENAZINE
     Indication: HUNTINGTON^S DISEASE
     Route: 048
     Dates: start: 20131230, end: 20160328

REACTIONS (5)
  - Visual impairment [Unknown]
  - Mood swings [Unknown]
  - Tardive dyskinesia [Unknown]
  - Restlessness [Unknown]
  - Dyskinesia [Unknown]
